FAERS Safety Report 24665478 (Version 1)
Quarter: 2024Q4

REPORT INFORMATION
  Report Type: Spontaneous
  Country: US (occurrence: US)
  Receive Date: 20241126
  Receipt Date: 20241126
  Transmission Date: 20250115
  Serious: Yes (Other)
  Sender: SANOFI AVENTIS
  Company Number: US-SA-2024SA338012

PATIENT
  Sex: Female

DRUGS (2)
  1. ARAVA [Interacting]
     Active Substance: LEFLUNOMIDE
     Dosage: UNK
  2. HUMIRA [Interacting]
     Active Substance: ADALIMUMAB
     Dosage: UNK

REACTIONS (7)
  - Pneumothorax [Unknown]
  - Drug interaction [Unknown]
  - Skin wound [Unknown]
  - Onychomadesis [Unknown]
  - Rash [Unknown]
  - Urticaria [Unknown]
  - Alopecia [Unknown]
